FAERS Safety Report 7239467-2 (Version None)
Quarter: 2011Q1

REPORT INFORMATION
  Report Type: 
  Country: None (occurrence: None)
  Receive Date: 20110121
  Receipt Date: 20110119
  Transmission Date: 20110831
  Serious: Yes (Hospitalization)
  Sender: FDA-Public Use
  Company Number: IT-ABBOTT-10P-083-0670823-00

PATIENT
  Sex: Female

DRUGS (4)
  1. DIAMINOCILLINA [Concomitant]
     Indication: PRODUCT USED FOR UNKNOWN INDICATION
  2. METOTREXATO [Concomitant]
     Indication: PRODUCT USED FOR UNKNOWN INDICATION
     Dates: start: 20100308, end: 20100810
  3. HUMIRA [Suspect]
     Indication: PRODUCT USED FOR UNKNOWN INDICATION
     Dosage: CYCLIC
     Dates: start: 20090901, end: 20100810
  4. LEDERFOLIC [Concomitant]
     Indication: PRODUCT USED FOR UNKNOWN INDICATION
     Route: 048

REACTIONS (4)
  - FIBROADENOMA OF BREAST [None]
  - DYSKINESIA [None]
  - BALANCE DISORDER [None]
  - GAIT DISTURBANCE [None]
